FAERS Safety Report 11883499 (Version 11)
Quarter: 2020Q1

REPORT INFORMATION
  Report Type: Report from Study
  Country: BR (occurrence: BR)
  Receive Date: 20151231
  Receipt Date: 20200114
  Transmission Date: 20200409
  Serious: Yes (Life-Threatening, Hospitalization, Other)
  Sender: FDA-Public Use
  Company Number: PHHY2014BR136159

PATIENT
  Age: 52 Year
  Sex: Female
  Weight: 79 kg

DRUGS (17)
  1. SANDOSTATIN LAR DEPOT [Suspect]
     Active Substance: OCTREOTIDE ACETATE
     Dosage: 40 MG, UNK
     Route: 065
  2. SOMAVERT [Concomitant]
     Active Substance: PEGVISOMANT
     Indication: PRODUCT USED FOR UNKNOWN INDICATION
     Dosage: 10 MG, QD
     Route: 058
  3. PURAN [Concomitant]
     Active Substance: LEVOTHYROXINE SODIUM
     Indication: PITUITARY TUMOUR
     Dosage: 1 DF, QD
     Route: 048
  4. SANDOSTATIN LAR DEPOT [Suspect]
     Active Substance: OCTREOTIDE ACETATE
     Dosage: (30 MG AND 10 MG, ONE AMPOULE EACH), QMO
     Route: 030
  5. PREDSIM [Suspect]
     Active Substance: PREDNISOLONE
     Indication: PRODUCT USED FOR UNKNOWN INDICATION
     Dosage: 1.5 MG, IN THE SYRINGE AFTER BREAKFAST
     Route: 048
  6. ESOMEPRAZOL +PHARMA [Concomitant]
     Indication: GASTRIC DISORDER
     Dosage: 1 DF, QD
     Route: 065
  7. SANDOSTATIN LAR DEPOT [Suspect]
     Active Substance: OCTREOTIDE ACETATE
     Dosage: 30 MG, QMO
     Route: 030
     Dates: start: 2003
  8. SANDOSTATIN [Suspect]
     Active Substance: OCTREOTIDE ACETATE
     Indication: ACROMEGALY
     Dosage: 2 DF, Q8H
     Route: 058
     Dates: start: 2001
  9. SANDOSTATIN LAR DEPOT [Suspect]
     Active Substance: OCTREOTIDE ACETATE
     Dosage: 30 MG, QMO
     Route: 030
     Dates: start: 201511
  10. SANDOSTATIN LAR DEPOT [Suspect]
     Active Substance: OCTREOTIDE ACETATE
     Dosage: UNK
     Route: 065
  11. SANDRENA [Concomitant]
     Active Substance: ESTRADIOL
     Indication: HORMONE REPLACEMENT THERAPY
     Dosage: 1 MG, IN THE BELLY FOOD
     Route: 065
  12. OMEPRAZOL [Concomitant]
     Active Substance: OMEPRAZOLE
     Indication: GASTRIC DISORDER
     Dosage: OT, QD
     Route: 065
  13. PREDNISONA [Suspect]
     Active Substance: PREDNISONE
     Indication: PRODUCT USED FOR UNKNOWN INDICATION
     Dosage: UNK
     Route: 065
  14. SANDOSTATIN LAR DEPOT [Suspect]
     Active Substance: OCTREOTIDE ACETATE
     Indication: ACROMEGALY
     Dosage: 30 MG, QMO
     Route: 030
     Dates: start: 2001
  15. SANDOSTATIN LAR DEPOT [Suspect]
     Active Substance: OCTREOTIDE ACETATE
     Dosage: 30 MG, QMO
     Route: 030
  16. FLUCONAZOLE. [Suspect]
     Active Substance: FLUCONAZOLE
     Indication: ONYCHOMYCOSIS
     Dosage: 400 MG, QW
     Route: 048
  17. LEVOTIROXINA [Concomitant]
     Active Substance: LEVOTHYROXINE
     Indication: THYROID HORMONE REPLACEMENT THERAPY
     Dosage: 2 DF, QD
     Route: 048

REACTIONS (47)
  - Injection site pain [Recovering/Resolving]
  - Hypoacusis [Recovering/Resolving]
  - Weight decreased [Unknown]
  - Injection site pain [Recovered/Resolved]
  - Decreased interest [Not Recovered/Not Resolved]
  - General physical health deterioration [Recovered/Resolved]
  - Adrenal neoplasm [Recovering/Resolving]
  - Swelling [Recovering/Resolving]
  - Drug ineffective [Unknown]
  - Depressed mood [Recovered/Resolved]
  - Blood pressure increased [Recovering/Resolving]
  - Hypoaesthesia [Unknown]
  - Stress [Not Recovered/Not Resolved]
  - Blood cholesterol increased [Recovered/Resolved]
  - Abdominal discomfort [Recovering/Resolving]
  - Injection site bruising [Recovered/Resolved]
  - Blood pressure decreased [Not Recovered/Not Resolved]
  - Injection site discomfort [Unknown]
  - Weight increased [Recovering/Resolving]
  - Sluggishness [Recovering/Resolving]
  - Feeling abnormal [Unknown]
  - Body height increased [Unknown]
  - Gait disturbance [Unknown]
  - Cough [Recovering/Resolving]
  - Anxiety [Recovering/Resolving]
  - Weight fluctuation [Not Recovered/Not Resolved]
  - Back disorder [Recovering/Resolving]
  - Syncope [Recovering/Resolving]
  - Nervousness [Unknown]
  - Anxiety disorder [Not Recovered/Not Resolved]
  - Central obesity [Unknown]
  - Vertigo [Not Recovered/Not Resolved]
  - Needle issue [Unknown]
  - Asthenia [Recovering/Resolving]
  - Blood glucose increased [Recovered/Resolved]
  - Malaise [Recovered/Resolved]
  - Loss of consciousness [Unknown]
  - Arrhythmia [Recovering/Resolving]
  - Injection site vesicles [Recovering/Resolving]
  - Agitation [Unknown]
  - Sinusitis [Unknown]
  - Tachycardia [Unknown]
  - Vomiting [Recovering/Resolving]
  - Dizziness [Recovering/Resolving]
  - Amnesia [Not Recovered/Not Resolved]
  - Fatigue [Not Recovered/Not Resolved]
  - Labyrinthitis [Not Recovered/Not Resolved]

NARRATIVE: CASE EVENT DATE: 2014
